FAERS Safety Report 13879770 (Version 2)
Quarter: 2017Q3

REPORT INFORMATION
  Report Type: Spontaneous
  Country: US (occurrence: US)
  Receive Date: 20170818
  Receipt Date: 20170908
  Transmission Date: 20171127
  Serious: Yes (Other)
  Sender: FDA-Public Use
  Company Number: US-TURING PHARMACEUTICALS-2017TNG00044

PATIENT
  Age: 45 Year
  Sex: Male

DRUGS (6)
  1. DARAPRIM [Suspect]
     Active Substance: PYRIMETHAMINE
     Indication: CEREBRAL TOXOPLASMOSIS
     Dosage: 75 MG, 1X/DAY
     Route: 048
     Dates: start: 201508
  2. DOLUTEGRAVIR; ABACAVIR; LAMIVUDINE [Concomitant]
  3. DARAPRIM [Suspect]
     Active Substance: PYRIMETHAMINE
     Dosage: 50 MG, 1X/DAY
     Route: 048
     Dates: end: 20170823
  4. DAPSONE. [Concomitant]
     Active Substance: DAPSONE
  5. RILPIVIRINE [Concomitant]
     Active Substance: RILPIVIRINE
  6. PYRIDOXINE [Concomitant]
     Active Substance: PYRIDOXINE

REACTIONS (3)
  - Amblyopia [Not Recovered/Not Resolved]
  - Neurosyphilis [Recovered/Resolved]
  - Leukoencephalopathy [Not Recovered/Not Resolved]

NARRATIVE: CASE EVENT DATE: 201705
